FAERS Safety Report 8868875 (Version 2)
Quarter: 2013Q3

REPORT INFORMATION
  Report Type: Spontaneous
  Country: US (occurrence: US)
  Receive Date: 20121026
  Receipt Date: 20130930
  Transmission Date: 20140515
  Serious: No
  Sender: FDA-Public Use
  Company Number: US-AMGEN-USASP2012047924

PATIENT
  Age: 52 Year
  Sex: Female
  Weight: 58.96 kg

DRUGS (8)
  1. ENBREL [Suspect]
     Indication: RHEUMATOID ARTHRITIS
     Dosage: 50 MG, QWK
     Route: 058
     Dates: start: 20120423
  2. PLAQUENIL                          /00072602/ [Concomitant]
     Dosage: 200 MG, UNK
  3. FISH OIL [Concomitant]
     Dosage: UNK
  4. VIT D [Concomitant]
     Dosage: HIGH CAP POTENCY
  5. FLAXSEED OIL [Concomitant]
     Dosage: UNK
  6. GLUCOSAMINE [Concomitant]
     Dosage: 750 MG, UNK
  7. LUTEIN                             /01638501/ [Concomitant]
     Dosage: 15-0.7 MG
  8. ASPIRIN [Concomitant]
     Dosage: 81 MG, UNK

REACTIONS (6)
  - Injection site erythema [Unknown]
  - Injection site swelling [Not Recovered/Not Resolved]
  - Injection site pruritus [Not Recovered/Not Resolved]
  - Injection site warmth [Not Recovered/Not Resolved]
  - Injection site reaction [Not Recovered/Not Resolved]
  - Injection site bruising [Unknown]
